FAERS Safety Report 4865185-1 (Version None)
Quarter: 2005Q4

REPORT INFORMATION
  Report Type: 
  Country: None (occurrence: None)
  Receive Date: 20051223
  Receipt Date: 20051216
  Transmission Date: 20060501
  Serious: Yes (Other)
  Sender: FDA-Public Use
  Company Number: US-GLAXOSMITHKLINE-A0586761A

PATIENT
  Sex: Male

DRUGS (1)
  1. ADVAIR DISKUS 250/50 [Suspect]
     Dosage: 1PUFF TWICE PER DAY
     Route: 055

REACTIONS (3)
  - ABNORMAL BEHAVIOUR [None]
  - AGGRESSION [None]
  - AGITATION [None]
